FAERS Safety Report 8149004-6 (Version None)
Quarter: 2012Q1

REPORT INFORMATION
  Report Type: 
  Country: None (occurrence: None)
  Receive Date: 20120218
  Receipt Date: 20110829
  Transmission Date: 20120608
  Serious: No
  Sender: FDA-Public Use
  Company Number: US-ALLERGAN-1110911US

PATIENT
  Age: 40 Year
  Sex: Female

DRUGS (2)
  1. MULTI-VITAMINS [Concomitant]
  2. BOTOX COSMETIC [Suspect]
     Indication: SKIN WRINKLING
     Dosage: 20 UNITS, SINGLE
     Route: 030
     Dates: start: 20110728, end: 20110728

REACTIONS (5)
  - PARAESTHESIA [None]
  - PHARYNGEAL HYPOAESTHESIA [None]
  - FACIAL PARESIS [None]
  - HYPOAESTHESIA EYE [None]
  - HYPOAESTHESIA ORAL [None]
